FAERS Safety Report 22134074 (Version 2)
Quarter: 2023Q1

REPORT INFORMATION
  Report Type: Spontaneous
  Country: DK (occurrence: DK)
  Receive Date: 20230324
  Receipt Date: 20230329
  Transmission Date: 20230417
  Serious: Yes (Hospitalization, Other)
  Sender: FDA-Public Use
  Company Number: DK-PFIZER INC-202101706098

PATIENT
  Age: 62 Year
  Sex: Female
  Weight: 68.9 kg

DRUGS (28)
  1. LENALIDOMIDE [Suspect]
     Active Substance: LENALIDOMIDE
     Indication: Follicular lymphoma stage IV
     Dosage: 20 MG, QD (D1-21 OF C1 THROUGH C12)
     Dates: start: 20210909, end: 20210917
  2. PREDNISOLONE ACETATE [Suspect]
     Active Substance: PREDNISOLONE ACETATE
     Indication: Follicular lymphoma stage IV
     Dosage: 100 MG (D1-D5); UNKNOWN
     Dates: start: 20210921, end: 20210921
  3. EPCORITAMAB [Suspect]
     Active Substance: EPCORITAMAB
     Indication: Follicular lymphoma stage IV
     Dosage: 0.16 MG, SINGLE (PRIMING DOSE), CONCENTRATE FOR SOLUTION FOR INJECTION
     Dates: start: 20210909, end: 20210909
  4. DOXORUBICIN HYDROCHLORIDE [Suspect]
     Active Substance: DOXORUBICIN HYDROCHLORIDE
     Indication: Follicular lymphoma stage IV
     Dosage: 50 MG/M2; UNKNOWN
     Dates: start: 20210921, end: 20210921
  5. VINCRISTINE SULFATE [Suspect]
     Active Substance: VINCRISTINE SULFATE
     Indication: Follicular lymphoma stage IV
     Dosage: UNK (REGIMEN #1)
     Dates: start: 20210921
  6. RITUXIMAB [Suspect]
     Active Substance: RITUXIMAB
     Indication: Follicular lymphoma stage IV
     Dosage: 375 MG/M2; UNKNOWN
     Dates: start: 20210921, end: 20210921
  7. RITUXIMAB [Suspect]
     Active Substance: RITUXIMAB
     Dosage: 375 MG/M2, WEEKLY, CONCENTRATE FOR SOLUTION FOR INFUSION
     Dates: start: 20210909, end: 20210909
  8. CYCLOPHOSPHAMIDE [Suspect]
     Active Substance: CYCLOPHOSPHAMIDE
     Indication: Follicular lymphoma stage IV
     Dosage: 750 MG/M2; UNKNOWN
     Dates: start: 20210921, end: 20210921
  9. ONCOVIN [Suspect]
     Active Substance: VINCRISTINE SULFATE
     Indication: Follicular lymphoma stage IV
     Dosage: 1.4 MG/M2; UNKNOWN
     Dates: start: 20210921, end: 20210921
  10. MORPHINE [Concomitant]
     Active Substance: MORPHINE
     Indication: Product used for unknown indication
     Dosage: UNK
     Dates: start: 20210930, end: 20211008
  11. METOPROLOL SUCCINATE [Concomitant]
     Active Substance: METOPROLOL SUCCINATE
     Indication: Product used for unknown indication
     Dosage: UNK
     Dates: start: 20210111
  12. GANGIDEN [Concomitant]
     Indication: Product used for unknown indication
     Dosage: UNK
     Dates: start: 20210917
  13. FILGRASTIM [Concomitant]
     Active Substance: FILGRASTIM
     Indication: Product used for unknown indication
     Dosage: UNK
     Dates: start: 20211003, end: 20211007
  14. PIPERACILLIN AND TAZOBACTAM [Concomitant]
     Active Substance: PIPERACILLIN SODIUM\TAZOBACTAM SODIUM
     Indication: Product used for unknown indication
     Dosage: UNK
     Dates: start: 20210930, end: 20211012
  15. MOXONAT [Concomitant]
     Indication: Product used for unknown indication
     Dosage: UNK
     Dates: start: 20210921
  16. METRONIDAZOLE [Concomitant]
     Active Substance: METRONIDAZOLE
     Indication: Product used for unknown indication
     Dosage: UNK
     Dates: start: 20210930, end: 20211006
  17. FUROSEMIDE [Concomitant]
     Active Substance: FUROSEMIDE
     Indication: Product used for unknown indication
     Dosage: UNK
     Dates: start: 20211011
  18. GENTAMICIN [Concomitant]
     Active Substance: GENTAMICIN
     Indication: Product used for unknown indication
     Dosage: UNK
     Dates: start: 20210930, end: 20211001
  19. SULFAMETHOXAZOLE\TRIMETHOPRIM [Concomitant]
     Active Substance: SULFAMETHOXAZOLE\TRIMETHOPRIM
     Indication: Product used for unknown indication
     Dosage: UNK
     Dates: start: 20210909
  20. SOLU-MEDROL [Concomitant]
     Active Substance: METHYLPREDNISOLONE SODIUM SUCCINATE
     Indication: Product used for unknown indication
     Dosage: 80 MG
     Dates: start: 20210909, end: 20210912
  21. ACYCLOVIR [Concomitant]
     Active Substance: ACYCLOVIR
     Indication: Product used for unknown indication
     Dosage: UNK
     Dates: start: 20210909
  22. BENDROFLUMETHIAZIDE\POTASSIUM CHLORIDE [Concomitant]
     Active Substance: BENDROFLUMETHIAZIDE\POTASSIUM CHLORIDE
     Indication: Product used for unknown indication
     Dosage: UNK
     Dates: start: 20210309, end: 20211011
  23. ACETAMINOPHEN [Concomitant]
     Active Substance: ACETAMINOPHEN
     Indication: Product used for unknown indication
     Dosage: UNK
     Dates: start: 20210915
  24. CIPROFLOXACIN [Concomitant]
     Active Substance: CIPROFLOXACIN
     Indication: Product used for unknown indication
     Dosage: UNK
     Dates: start: 20211001, end: 20211018
  25. NYSTATIN [Concomitant]
     Active Substance: NYSTATIN
     Indication: Product used for unknown indication
     Dosage: UNK
     Dates: start: 20210914, end: 20211018
  26. PREDNISOLONE [Concomitant]
     Active Substance: PREDNISOLONE
     Indication: Product used for unknown indication
     Dosage: 100 MG
     Dates: start: 20210909, end: 20210912
  27. MABLET [Concomitant]
     Indication: Product used for unknown indication
     Dates: start: 20211014, end: 20211030
  28. POTASSIUM CHLORIDE [Concomitant]
     Active Substance: POTASSIUM CHLORIDE
     Indication: Product used for unknown indication
     Dates: start: 20210523, end: 20211029

REACTIONS (6)
  - Hyperkalaemia [Recovered/Resolved]
  - Sinus tachycardia [Unknown]
  - Cardiomegaly [Unknown]
  - Hydronephrosis [Unknown]
  - Ascites [Unknown]
  - Device dislocation [Unknown]

NARRATIVE: CASE EVENT DATE: 20210915
